FAERS Safety Report 5341275-4 (Version None)
Quarter: 2007Q2

REPORT INFORMATION
  Report Type: 
  Country: None (occurrence: None)
  Receive Date: 20070404
  Receipt Date: 20070103
  Transmission Date: 20071010
  Serious: Yes (Other)
  Sender: FDA-Public Use
  Company Number: 2007002018

PATIENT
  Sex: Female

DRUGS (6)
  1. GEODON [Suspect]
     Indication: DEPRESSION
     Dosage: 100 MG (50 MG, 2 IN 1 D), ORAL
     Route: 048
     Dates: start: 20061223
  2. GEODON [Suspect]
     Indication: HALLUCINATION, AUDITORY
     Dosage: 100 MG (50 MG, 2 IN 1 D), ORAL
     Route: 048
     Dates: start: 20061223
  3. GEODON [Suspect]
     Indication: PARANOIA
     Dosage: 100 MG (50 MG, 2 IN 1 D), ORAL
     Route: 048
     Dates: start: 20061223
  4. TOPROL-XL [Concomitant]
  5. NORVASC [Concomitant]
  6. PROZAC [Concomitant]

REACTIONS (2)
  - HYPERTENSION [None]
  - TREMOR [None]
